FAERS Safety Report 18023007 (Version 2)
Quarter: 2020Q3

REPORT INFORMATION
  Report Type: Spontaneous
  Country: SE (occurrence: SE)
  Receive Date: 20200714
  Receipt Date: 20200728
  Transmission Date: 20201103
  Serious: Yes (Other)
  Sender: FDA-Public Use
  Company Number: SE-JNJFOC-20200144653

PATIENT
  Age: 65 Year
  Sex: Female

DRUGS (2)
  1. REMICADE [Suspect]
     Active Substance: INFLIXIMAB
     Indication: RHEUMATOID ARTHRITIS
     Route: 042
     Dates: start: 20170216, end: 20200108
  2. IMUREL                             /00001501/ [Concomitant]
     Active Substance: AZATHIOPRINE SODIUM
     Route: 065
     Dates: start: 20050811

REACTIONS (2)
  - Cutaneous lupus erythematosus [Unknown]
  - Herpes virus infection [Unknown]

NARRATIVE: CASE EVENT DATE: 20200108
